FAERS Safety Report 9736729 (Version 1)
Quarter: 2013Q4

REPORT INFORMATION
  Report Type: Spontaneous
  Country: RU (occurrence: RU)
  Receive Date: 20131206
  Receipt Date: 20131206
  Transmission Date: 20140711
  Serious: Yes (Death)
  Sender: FDA-Public Use
  Company Number: RU-B.I. PHARMACEUTICALS,INC./RIDGEFIELD-2013-BI-40780RZ

PATIENT
  Age: 60 Year
  Sex: Female

DRUGS (4)
  1. PRADAXA [Suspect]
     Indication: ATRIAL FIBRILLATION
     Dosage: 300 MG
     Route: 048
     Dates: start: 201307
  2. ENZIX/INDAPAMID [Concomitant]
     Indication: HYPERTENSION
     Dosage: 5 MG
  3. ENZIX/ENALAPRIL [Concomitant]
     Indication: HYPERTENSION
     Dosage: 20 MG
  4. KONKOR/BISOPROLOL [Concomitant]
     Indication: HYPERTENSION
     Dosage: 5 MG

REACTIONS (2)
  - Ischaemic stroke [Fatal]
  - Myocardial infarction [Fatal]
